FAERS Safety Report 10075619 (Version 1)
Quarter: 2014Q2

REPORT INFORMATION
  Report Type: Spontaneous
  Country: US (occurrence: None)
  Receive Date: 20140411
  Receipt Date: 20140411
  Transmission Date: 20141212
  Serious: Yes (Hospitalization)
  Sender: FDA-Public Use
  Company Number: None

PATIENT
  Age: 82 Year
  Sex: Female
  Weight: 79.3 kg

DRUGS (3)
  1. CYCLOPHOSPHAMIDE [Suspect]
     Dates: start: 20020710
  2. DOXORUBICIN HYDROCHLORIDE [Suspect]
     Dates: start: 20020710
  3. PACLITAXEL [Suspect]
     Dates: start: 20021016

REACTIONS (4)
  - Vitamin B12 deficiency [None]
  - Pancytopenia [None]
  - Myelodysplastic syndrome [None]
  - Contusion [None]
